FAERS Safety Report 9586028 (Version 1)
Quarter: 2013Q4

REPORT INFORMATION
  Report Type: Spontaneous
  Country: US (occurrence: US)
  Receive Date: 20131003
  Receipt Date: 20131003
  Transmission Date: 20140711
  Serious: No
  Sender: FDA-Public Use
  Company Number: US-PFIZER INC-2013279762

PATIENT
  Age: 71 Year
  Sex: Female

DRUGS (9)
  1. ADVIL LIQUIGEL [Suspect]
     Indication: SINUS HEADACHE
     Dosage: 200 MG, UNK
     Route: 048
  2. ADVIL LIQUIGEL [Suspect]
     Dosage: 600 MG (THREE TABLETS OF 200MG), ONCE
     Route: 048
  3. ADVIL LIQUIGEL [Suspect]
     Dosage: 200 MG, UNK
     Route: 048
  4. ADVIL MIGRAINE [Suspect]
     Indication: SINUS HEADACHE
     Dosage: UNK
     Dates: end: 2013
  5. BABY ASPIRIN [Concomitant]
     Dosage: UNK
  6. DIOVAN HCT [Concomitant]
     Indication: HYPERTENSION
     Dosage: 25/320 MG, UNK
  7. LIPITOR [Concomitant]
     Dosage: 80 MG, UNK
  8. PLAVIX [Concomitant]
     Dosage: UNK
  9. PROZAC [Concomitant]
     Dosage: UNK

REACTIONS (3)
  - Extra dose administered [Unknown]
  - Off label use [Unknown]
  - Drug ineffective [Unknown]
